FAERS Safety Report 15806054 (Version 1)
Quarter: 2019Q1

REPORT INFORMATION
  Report Type: Spontaneous
  Country: HR (occurrence: HR)
  Receive Date: 20190110
  Receipt Date: 20190110
  Transmission Date: 20190417
  Serious: Yes (Other)
  Sender: FDA-Public Use
  Company Number: HR-009507513-1901HRV001829

PATIENT
  Age: 21 Year
  Sex: Female
  Weight: 74.6 kg

DRUGS (1)
  1. AERIUS (DESLORATADINE) [Suspect]
     Active Substance: DESLORATADINE
     Indication: DRUG HYPERSENSITIVITY
     Dosage: 5 MG, QD
     Route: 048
     Dates: start: 20181210, end: 20181214

REACTIONS (6)
  - Dysphagia [Recovering/Resolving]
  - Hypopnoea [Recovering/Resolving]
  - Vision blurred [Recovering/Resolving]
  - Pharyngeal oedema [Recovering/Resolving]
  - Dizziness [Recovering/Resolving]
  - Ear discomfort [Recovering/Resolving]

NARRATIVE: CASE EVENT DATE: 20181214
